FAERS Safety Report 9950425 (Version 2)
Quarter: 2014Q1

REPORT INFORMATION
  Report Type: Spontaneous
  Country: US (occurrence: US)
  Receive Date: 20140304
  Receipt Date: 20140318
  Transmission Date: 20141002
  Serious: Yes (Hospitalization)
  Sender: FDA-Public Use
  Company Number: 2014SP001175

PATIENT
  Sex: Female

DRUGS (4)
  1. FLUOROURACIL [Suspect]
     Indication: GALLBLADDER CANCER METASTATIC
     Dates: start: 201306
  2. OXALIPLATIN [Suspect]
     Indication: GALLBLADDER CANCER METASTATIC
     Dates: start: 201306, end: 201312
  3. TYKERB [Suspect]
     Indication: GALLBLADDER CANCER METASTATIC
     Dates: start: 201312
  4. TYKERB [Suspect]
     Indication: GALLBLADDER CANCER STAGE IV
     Dates: start: 201312

REACTIONS (3)
  - Off label use [Not Recovered/Not Resolved]
  - Toxicity to various agents [Not Recovered/Not Resolved]
  - Adverse drug reaction [Not Recovered/Not Resolved]
